FAERS Safety Report 22063728 (Version 12)
Quarter: 2023Q4

REPORT INFORMATION
  Report Type: Report from Study
  Country: US (occurrence: US)
  Receive Date: 20230306
  Receipt Date: 20231108
  Transmission Date: 20240109
  Serious: Yes (Other)
  Sender: FDA-Public Use
  Company Number: US-002147023-NVSC2023US046726

PATIENT
  Age: 59 Year
  Sex: Male

DRUGS (5)
  1. KESIMPTA [Suspect]
     Active Substance: OFATUMUMAB
     Indication: Relapsing multiple sclerosis
     Dosage: 20 MG, QMO
     Route: 058
     Dates: start: 20230210
  2. VITAMIN B12 [Concomitant]
     Active Substance: CYANOCOBALAMIN
     Indication: Product used for unknown indication
     Dosage: 2 INCH NEEDLE
     Route: 065
     Dates: start: 20230227
  3. MODAFINIL [Concomitant]
     Active Substance: MODAFINIL
     Indication: Energy increased
     Dosage: (ENERGY PILL)
     Route: 065
  4. TRILEPTAL [Concomitant]
     Active Substance: OXCARBAZEPINE
     Indication: Product used for unknown indication
     Dosage: UNK
     Route: 065
  5. LYRICA [Concomitant]
     Active Substance: PREGABALIN
     Indication: Product used for unknown indication
     Dosage: UNK
     Route: 065

REACTIONS (11)
  - Multiple sclerosis [Unknown]
  - Paraesthesia [Recovered/Resolved]
  - Food allergy [Unknown]
  - Pain [Unknown]
  - Peroneal nerve palsy [Not Recovered/Not Resolved]
  - Weight decreased [Unknown]
  - Gait disturbance [Unknown]
  - Fall [Unknown]
  - Arthralgia [Unknown]
  - Fatigue [Recovering/Resolving]
  - Injection site haemorrhage [Unknown]

NARRATIVE: CASE EVENT DATE: 20230210
